FAERS Safety Report 6032782-X (Version None)
Quarter: 2009Q1

REPORT INFORMATION
  Report Type: 
  Country: None (occurrence: None)
  Receive Date: 20090109
  Receipt Date: 20081209
  Transmission Date: 20090719
  Serious: No
  Sender: FDA-Public Use
  Company Number: US-BAYER-200833473NA

PATIENT
  Age: 61 Year
  Sex: Male

DRUGS (2)
  1. ULTRAVIST 300 [Suspect]
     Indication: COMPUTERISED TOMOGRAM ABDOMEN
     Dosage: TOTAL DAILY DOSE: 100 ML  UNIT DOSE: 150 ML
     Route: 042
     Dates: start: 20080825, end: 20080825
  2. STEROID PREP [Concomitant]
     Indication: CONTRAST MEDIA REACTION
     Dates: start: 20080825, end: 20080825

REACTIONS (1)
  - RASH [None]
